FAERS Safety Report 4953668-5 (Version None)
Quarter: 2006Q1

REPORT INFORMATION
  Report Type: 
  Country: None (occurrence: None)
  Receive Date: 20060324
  Receipt Date: 20051220
  Transmission Date: 20060701
  Serious: Yes (Death, Hospitalization, Disabling)
  Sender: FDA-Public Use
  Company Number: US-MERCK-0512USA03340

PATIENT
  Age: 57 Year
  Sex: Male
  Weight: 59 kg

DRUGS (14)
  1. VIOXX [Suspect]
     Indication: ARTHRALGIA
     Route: 048
     Dates: start: 20010101, end: 20040601
  2. ASPIRIN [Concomitant]
     Route: 048
  3. DHEA [Concomitant]
     Route: 048
  4. WELLBUTRIN [Concomitant]
     Route: 048
     Dates: start: 20031120
  5. ZIAC [Concomitant]
     Route: 048
     Dates: start: 20031006
  6. GLUCOSAMINE [Concomitant]
     Route: 065
  7. CHONDROITIN [Concomitant]
     Route: 065
  8. DIMETHYL SULFONE [Concomitant]
     Route: 065
  9. AMOXICILLIN [Concomitant]
     Route: 048
     Dates: start: 20031021
  10. PLAVIX [Concomitant]
     Route: 048
     Dates: start: 20030428
  11. AMOXI/CLAV [Concomitant]
     Route: 048
     Dates: start: 20030509
  12. NASACORT [Concomitant]
     Route: 048
     Dates: start: 20030926
  13. ACETAMINOPHEN AND CODEINE PHOSPHATE [Concomitant]
     Route: 048
     Dates: start: 20040628
  14. WARFARIN [Concomitant]
     Route: 048
     Dates: start: 20040629

REACTIONS (7)
  - CAROTID ARTERY DISSECTION [None]
  - CORONARY ARTERY DISEASE [None]
  - HYPERTENSION [None]
  - MYOCARDIAL INFARCTION [None]
  - OSTEOARTHRITIS [None]
  - TONSIL CANCER [None]
  - WEIGHT DECREASED [None]
